FAERS Safety Report 9858261 (Version 1)
Quarter: 2014Q1

REPORT INFORMATION
  Report Type: Report from Study
  Country: CA (occurrence: CA)
  Receive Date: 20140131
  Receipt Date: 20140131
  Transmission Date: 20141002
  Serious: Yes (Other)
  Sender: FDA-Public Use
  Company Number: CA-JNJFOC-20140115321

PATIENT
  Age: 56 Year
  Sex: Female
  Weight: 117 kg

DRUGS (7)
  1. REMICADE [Suspect]
     Indication: RHEUMATOID ARTHRITIS
     Route: 042
     Dates: start: 20140123, end: 20140123
  2. ATENOLOL [Concomitant]
     Indication: BLOOD PRESSURE
     Route: 065
  3. AMLODIPINE [Concomitant]
     Dosage: HALF TAB AT HOUR OF SLEEP.
     Route: 065
  4. LEVOTHYROXINE [Concomitant]
     Route: 065
  5. VENLAFAXINE [Concomitant]
     Route: 065
  6. ARAVA [Concomitant]
     Route: 065
  7. TYLENOL 3 [Concomitant]
     Route: 065

REACTIONS (5)
  - Syncope [Recovered/Resolved]
  - Infusion related reaction [Recovered/Resolved]
  - Nausea [Recovered/Resolved]
  - Flushing [Recovered/Resolved]
  - Hypotension [Recovered/Resolved]
